FAERS Safety Report 6816952-6 (Version None)
Quarter: 2010Q3

REPORT INFORMATION
  Report Type: 
  Country: None (occurrence: None)
  Receive Date: 20100706
  Receipt Date: 20100623
  Transmission Date: 20110219
  Serious: Yes (Death, Hospitalization)
  Sender: FDA-Public Use
  Company Number: FR-WYE-G06311610

PATIENT
  Age: 59 Year
  Sex: Male

DRUGS (5)
  1. TAZOCILLINE [Suspect]
     Indication: LUNG DISORDER
     Dosage: UNKNOWN
     Route: 042
     Dates: start: 20100420, end: 20100502
  2. FUROSEMIDE [Suspect]
     Dosage: UNKNOWN
     Dates: start: 20100416, end: 20100512
  3. PANTOPRAZOLE SODIUM [Suspect]
     Dosage: UNKNOWN
     Route: 048
     Dates: start: 20100416, end: 20100512
  4. CIFLOX [Suspect]
     Indication: LUNG DISORDER
     Dosage: UNKNOWN
     Route: 042
     Dates: start: 20100420, end: 20100502
  5. HEPARIN [Suspect]
     Dosage: UNKNOWN
     Route: 042
     Dates: start: 20100416, end: 20100510

REACTIONS (5)
  - CONDITION AGGRAVATED [None]
  - HEPARIN-INDUCED THROMBOCYTOPENIA [None]
  - LUNG DISORDER [None]
  - MULTI-ORGAN FAILURE [None]
  - PNEUMOTHORAX [None]
